FAERS Safety Report 5103797-0 (Version None)
Quarter: 2006Q3

REPORT INFORMATION
  Report Type: 
  Country: None (occurrence: None)
  Receive Date: 20060913
  Receipt Date: 20060903
  Transmission Date: 20061208
  Serious: Yes (Hospitalization)
  Sender: FDA-Public Use
  Company Number: US-ROCHE-462035

PATIENT
  Age: 54 Year
  Sex: Male

DRUGS (2)
  1. PEGASYS [Suspect]
     Dosage: ROUTE REPORTED AS ^INJ^.
     Route: 050
     Dates: start: 20060512
  2. RIBAVIRIN [Suspect]
     Route: 048
     Dates: start: 20060512

REACTIONS (5)
  - BALANCE DISORDER [None]
  - BLOOD POTASSIUM DECREASED [None]
  - CHEST PAIN [None]
  - DIZZINESS [None]
  - UNEVALUABLE EVENT [None]
